FAERS Safety Report 9367206 (Version 1)
Quarter: 2013Q2

REPORT INFORMATION
  Report Type: Spontaneous
  Country: US (occurrence: US)
  Receive Date: 20130625
  Receipt Date: 20130625
  Transmission Date: 20140414
  Serious: No
  Sender: FDA-Public Use
  Company Number: US-ASTELLAS-2012US005779

PATIENT
  Sex: Male

DRUGS (12)
  1. VESICARE [Suspect]
     Indication: PROSTATOMEGALY
     Dosage: 10 MG, UID/QD
     Route: 048
     Dates: start: 201205
  2. VESICARE [Suspect]
     Dosage: 5 MG, UNKNOWN/D
     Route: 048
  3. AMITRIPTYLINE [Concomitant]
     Indication: PRODUCT USED FOR UNKNOWN INDICATION
     Dosage: 2 MG, UNKNOWN/D
     Route: 065
  4. FINASTERIDE [Concomitant]
     Indication: PRODUCT USED FOR UNKNOWN INDICATION
     Dosage: 5 MG, UNKNOWN/D
     Route: 065
  5. LEVOTHYROXINE SODIUM [Concomitant]
     Indication: PRODUCT USED FOR UNKNOWN INDICATION
     Dosage: 25 UG, UNKNOWN/D
     Route: 065
  6. LISINOPRIL [Concomitant]
     Indication: PRODUCT USED FOR UNKNOWN INDICATION
     Dosage: 40 MG, UNKNOWN/D
     Route: 065
  7. TOPROL [Concomitant]
     Indication: PRODUCT USED FOR UNKNOWN INDICATION
     Dosage: 200 MG, UNKNOWN/D
     Route: 065
  8. CRESTOR [Concomitant]
     Indication: PRODUCT USED FOR UNKNOWN INDICATION
     Dosage: 40 MG, UNKNOWN/D
     Route: 065
  9. TAMSULOSIN [Concomitant]
     Indication: PRODUCT USED FOR UNKNOWN INDICATION
     Dosage: 0.4 MG, UNKNOWN/D
     Route: 065
  10. TRIAMCINOLONE ACETONIDE [Concomitant]
     Indication: PRODUCT USED FOR UNKNOWN INDICATION
     Dosage: 0.1 %, UNKNOWN/D
     Route: 065
  11. COUMADIN                           /00014802/ [Concomitant]
     Indication: PRODUCT USED FOR UNKNOWN INDICATION
     Dosage: 10 MG, UNKNOWN/D
     Route: 065
  12. COUMADIN                           /00014802/ [Concomitant]
     Dosage: 5 MG, UNKNOWN/D
     Route: 065

REACTIONS (3)
  - Off label use [Unknown]
  - Haematochezia [Not Recovered/Not Resolved]
  - Constipation [Not Recovered/Not Resolved]
